FAERS Safety Report 6300790-7 (Version None)
Quarter: 2009Q3

REPORT INFORMATION
  Report Type: 
  Country: None (occurrence: None)
  Receive Date: 20090807
  Receipt Date: 20090717
  Transmission Date: 20100115
  Serious: Yes (Hospitalization)
  Sender: FDA-Public Use
  Company Number: US-BRISTOL-MYERS SQUIBB COMPANY-14728893

PATIENT
  Age: 51 Year
  Sex: Male
  Weight: 93 kg

DRUGS (16)
  1. CETUXIMAB [Suspect]
     Indication: NON-SMALL CELL LUNG CANCER METASTATIC
     Route: 042
     Dates: start: 20090414, end: 20090714
  2. ALIMTA [Suspect]
     Indication: NON-SMALL CELL LUNG CANCER METASTATIC
     Route: 042
     Dates: start: 20090414, end: 20090707
  3. AVANDAMET [Concomitant]
     Indication: DIABETES MELLITUS
     Dosage: 1 DF= 4MG/1000MG
  4. CALCIUM SUPPLEMENT [Concomitant]
     Indication: SUPPLEMENTATION THERAPY
  5. GLIPIZIDE [Concomitant]
     Indication: DIABETES MELLITUS
     Dosage: GLIPIZIDE XL
     Route: 048
  6. GLUCOSAMINE [Concomitant]
     Route: 048
  7. LIPITOR [Concomitant]
     Route: 048
  8. MELATONIN [Concomitant]
  9. MULTI-VITAMIN [Concomitant]
     Dosage: 1 DF= 1 TAB
     Route: 048
  10. ASCORBIC ACID [Concomitant]
     Route: 048
  11. FENTANYL [Concomitant]
     Indication: PAIN
     Route: 062
  12. MORPHINE SULFATE IR [Concomitant]
     Indication: PAIN
  13. LORAZEPAM [Concomitant]
     Indication: ANXIETY
     Dosage: 1 DF= 2 TABS
     Route: 048
  14. POTASSIUM CHLORIDE [Concomitant]
  15. MAGNESIUM [Concomitant]
     Route: 048
  16. COUMADIN [Concomitant]
     Indication: DEEP VEIN THROMBOSIS
     Dates: end: 20090707

REACTIONS (4)
  - BLOOD GLUCOSE INCREASED [None]
  - FEBRILE NEUTROPENIA [None]
  - OEDEMA PERIPHERAL [None]
  - PANCYTOPENIA [None]
